FAERS Safety Report 17157821 (Version 1)
Quarter: 2019Q4

REPORT INFORMATION
  Report Type: Spontaneous
  Country: US (occurrence: US)
  Receive Date: 20191213
  Receipt Date: 20191213
  Transmission Date: 20200122
  Serious: Yes (Life-Threatening, Hospitalization)
  Sender: FDA-Public Use
  Company Number: None

PATIENT
  Age: 52 Year
  Sex: Female
  Weight: 85.5 kg

DRUGS (10)
  1. PREMARIN [Concomitant]
     Active Substance: ESTROGENS, CONJUGATED
  2. HALF-ASPIRIN [Concomitant]
  3. OXYBUTYNIN. [Concomitant]
     Active Substance: OXYBUTYNIN CHLORIDE
  4. D-MANNOSE [Concomitant]
  5. VITAMIN B COMPLEX [Concomitant]
     Active Substance: CYANOCOBALAMIN\DEXPANTHENOL\NIACINAMIDE\PYRIDOXINE HYDROCHLORIDE\RIBOFLAVIN 5^-PHOSPHATE SODIUM\THIAMINE HYDROCHLORIDE\VITAMIN B COMPLEX
  6. VITAMIN D [Concomitant]
     Active Substance: VITAMIN D NOS
  7. NITROFURANTOIN MONO-MCR 100 MG CAPSULE [Suspect]
     Active Substance: NITROFURANTOIN\NITROFURANTOIN MONOHYDRATE
     Indication: URINARY TRACT INFECTION
     Dosage: ?          QUANTITY:1 CAPSULE(S);?
     Route: 048
     Dates: start: 20191209, end: 20191209
  8. SERTRALINE [Concomitant]
     Active Substance: SERTRALINE HYDROCHLORIDE
  9. LISINOPRIL. [Concomitant]
     Active Substance: LISINOPRIL
  10. TESTOSTERONE CREAM [Concomitant]
     Active Substance: TESTOSTERONE

REACTIONS (8)
  - Blood pressure decreased [None]
  - Loss of consciousness [None]
  - Drug hypersensitivity [None]
  - Anaphylactic shock [None]
  - Abdominal pain upper [None]
  - Diarrhoea [None]
  - Pruritus [None]
  - Dizziness [None]

NARRATIVE: CASE EVENT DATE: 20191209
